FAERS Safety Report 24591352 (Version 2)
Quarter: 2025Q2

REPORT INFORMATION
  Report Type: Spontaneous
  Country: DE (occurrence: DE)
  Receive Date: 20241108
  Receipt Date: 20250507
  Transmission Date: 20250716
  Serious: Yes (Hospitalization, Other)
  Sender: AMGEN
  Company Number: DE-AMGEN-DEUNI2023101790

PATIENT
  Age: 44 Year
  Sex: Female
  Weight: 111 kg

DRUGS (24)
  1. TRASTUZUMAB [Suspect]
     Active Substance: TRASTUZUMAB
     Indication: Breast cancer
     Dosage: 6 MG/KG, EVERY 3 WEEKS
     Route: 042
     Dates: start: 20230322
  2. DENOSUMAB [Suspect]
     Active Substance: DENOSUMAB
     Indication: Breast cancer
     Dosage: 120 MG, MONTHLY
     Route: 058
     Dates: start: 20230726
  3. DENOSUMAB [Suspect]
     Active Substance: DENOSUMAB
     Indication: Prophylaxis
  4. CAPECITABINE [Suspect]
     Active Substance: CAPECITABINE
     Indication: Breast cancer
     Dosage: 2300 MG, 1X/DAY
     Route: 048
     Dates: start: 20230404
  5. TUKYSA [Suspect]
     Active Substance: TUCATINIB
     Indication: Breast cancer
     Dosage: 300 MG, (2X2 150 MG) QD/ CUMULATIVE DOSE TO FIRST REACTION (NUMBER)  15600 MG
     Route: 048
     Dates: start: 20230404, end: 20230526
  6. DEXAMETHASONE [Concomitant]
     Active Substance: DEXAMETHASONE
     Indication: Prophylaxis
     Dosage: 8 MILLIGRAM, QD/4 MG, BID
     Route: 048
     Dates: start: 20230222, end: 202302
  7. PANTOPRAZOLE SODIUM [Concomitant]
     Active Substance: PANTOPRAZOLE SODIUM
     Indication: Prophylaxis
     Dosage: 40 MG, QD
     Route: 048
     Dates: start: 20040301
  8. PANTOPRAZOLE SODIUM [Concomitant]
     Active Substance: PANTOPRAZOLE SODIUM
     Indication: Prophylaxis
  9. PREGABALIN [Concomitant]
     Active Substance: PREGABALIN
     Indication: Prophylaxis
     Dosage: 25 MG, QID
     Route: 048
     Dates: start: 20180701
  10. PREGABALIN [Concomitant]
     Active Substance: PREGABALIN
     Indication: Prophylaxis
  11. ALLOPURINOL [Concomitant]
     Active Substance: ALLOPURINOL
     Indication: Prophylaxis
     Dosage: 300 MG, QD
     Route: 048
     Dates: start: 20210201, end: 20220401
  12. ALLOPURINOL [Concomitant]
     Active Substance: ALLOPURINOL
     Indication: Prophylaxis
  13. SERTRALINE HYDROCHLORIDE [Concomitant]
     Active Substance: SERTRALINE HYDROCHLORIDE
     Indication: Prophylaxis
     Dosage: 50 MILLIGRAM, BID
     Route: 048
     Dates: start: 20140101
  14. SERTRALINE HYDROCHLORIDE [Concomitant]
     Active Substance: SERTRALINE HYDROCHLORIDE
     Indication: Prophylaxis
  15. METOPROLOL [Concomitant]
     Active Substance: METOPROLOL
     Indication: Prophylaxis
     Dosage: 47.5 MG, QD
     Route: 048
     Dates: start: 20170101
  16. METOPROLOL [Concomitant]
     Active Substance: METOPROLOL
     Indication: Prophylaxis
  17. MIRTAZAPINE [Concomitant]
     Active Substance: MIRTAZAPINE
     Indication: Prophylaxis
     Dosage: 15 MG, QD
     Route: 048
     Dates: start: 20180701
  18. MIRTAZAPINE [Concomitant]
     Active Substance: MIRTAZAPINE
     Indication: Prophylaxis
  19. NALOXONE HYDROCHLORIDE\TILIDINE HYDROCHLORIDE [Concomitant]
     Active Substance: NALOXONE HYDROCHLORIDE\TILIDINE HYDROCHLORIDE
     Indication: Prophylaxis
     Dosage: 50 MG, QD
     Route: 048
     Dates: start: 20210801, end: 202306
  20. NALOXONE HYDROCHLORIDE\TILIDINE HYDROCHLORIDE [Concomitant]
     Active Substance: NALOXONE HYDROCHLORIDE\TILIDINE HYDROCHLORIDE
     Indication: Prophylaxis
  21. Erypo [Concomitant]
     Route: 065
     Dates: start: 20230525
  22. METAMIZOLE [Concomitant]
     Active Substance: METAMIZOLE
     Indication: Fibromyalgia
     Dosage: 1000 MILLIGRAM, QD/500 MG, BID
     Route: 048
     Dates: start: 20230510
  23. CALCIUM CARBONATE [Concomitant]
     Active Substance: CALCIUM CARBONATE
     Indication: Prophylaxis
     Dosage: 1000 MG, DAILY
     Route: 048
     Dates: start: 20230726
  24. MORPHINE [Concomitant]
     Active Substance: MORPHINE
     Indication: Prophylaxis
     Route: 048
     Dates: start: 202305

REACTIONS (1)
  - Sepsis [Recovered/Resolved]

NARRATIVE: CASE EVENT DATE: 20230525
